FAERS Safety Report 17190568 (Version 1)
Quarter: 2019Q4

REPORT INFORMATION
  Report Type: Spontaneous
  Country: US (occurrence: US)
  Receive Date: 20191220
  Receipt Date: 20191220
  Transmission Date: 20200122
  Serious: Yes (Disabling)
  Sender: FDA-Public Use
  Company Number: None

PATIENT
  Age: 53 Year
  Sex: Female
  Weight: 72 kg

DRUGS (1)
  1. OSELTAMIVIR PHOSPHATE 75 MG [Suspect]
     Active Substance: OSELTAMIVIR PHOSPHATE
     Indication: INFLUENZA
     Dosage: ?          QUANTITY:10 CAPSULE(S);OTHER ROUTE:BY MOUTH?
     Route: 048

REACTIONS (12)
  - Anxiety [None]
  - Chest discomfort [None]
  - Headache [None]
  - Diarrhoea [None]
  - Hyperventilation [None]
  - Nausea [None]
  - Dysphagia [None]
  - Dyspnoea [None]
  - Oropharyngeal discomfort [None]
  - Fear [None]
  - Insomnia [None]
  - Hypophagia [None]

NARRATIVE: CASE EVENT DATE: 20191202
